FAERS Safety Report 4982060-2 (Version None)
Quarter: 2006Q2

REPORT INFORMATION
  Report Type: 
  Country: None (occurrence: None)
  Receive Date: 20060421
  Receipt Date: 20060411
  Transmission Date: 20061013
  Serious: Yes (Life-Threatening)
  Sender: FDA-Public Use
  Company Number: 1-13765001

PATIENT
  Age: 54 Year
  Sex: Female

DRUGS (9)
  1. SULFAMETHOXAZOLE/TRIMETHOPRIM  TABLET 400/80 MG (MUTUAL) [Suspect]
     Indication: INDWELLING CATHETER MANAGEMENT
     Dosage: ONE TAB 3X WEEKLY, ORAL
     Route: 048
     Dates: start: 20000101
  2. SULFAMETHOXAZOLE/TRIMETHOPRIM  TABLET 400/80 MG (MUTUAL) [Suspect]
     Indication: PROPHYLAXIS
     Dosage: ONE TAB 3X WEEKLY, ORAL
     Route: 048
     Dates: start: 20000101
  3. CLONIDINE [Concomitant]
  4. VERAPAMIL ER [Concomitant]
  5. COZAAR [Concomitant]
  6. LAMICTAL [Concomitant]
  7. KEPPRA [Concomitant]
  8. SYNTHROID [Concomitant]
  9. BOWEL PROGRAM (ENEMA) [Concomitant]

REACTIONS (10)
  - ABNORMAL BEHAVIOUR [None]
  - BLOOD GLUCOSE INCREASED [None]
  - BLOOD PRESSURE INCREASED [None]
  - BODY TEMPERATURE INCREASED [None]
  - EYE ROLLING [None]
  - HEART RATE INCREASED [None]
  - LOSS OF CONSCIOUSNESS [None]
  - MENTAL STATUS CHANGES [None]
  - NEUROLOGICAL SYMPTOM [None]
  - TREMOR [None]
